FAERS Safety Report 9969784 (Version 1)
Quarter: 2014Q1

REPORT INFORMATION
  Report Type: Spontaneous
  Country: US (occurrence: None)
  Receive Date: 20140304
  Receipt Date: 20140304
  Transmission Date: 20141002
  Serious: Yes (Other)
  Sender: FDA-Public Use
  Company Number: None

PATIENT
  Sex: Male
  Weight: 81.65 kg

DRUGS (14)
  1. CLONAZEPAM [Suspect]
     Indication: RESTLESS LEGS SYNDROME
     Route: 048
     Dates: start: 20130101
  2. CARB/LEVO [Suspect]
     Indication: RESTLESS LEGS SYNDROME
     Dosage: 5 DAILY, ORALLY
     Route: 048
  3. ORAL DEVICE FOR APNEA [Concomitant]
  4. KLONOPIN [Concomitant]
  5. METFORMIN [Concomitant]
  6. GLIPIZIDE [Concomitant]
  7. LISINOPRIL [Concomitant]
  8. PREVASTATIN [Concomitant]
  9. FIORICET [Concomitant]
  10. MIRAPEX [Concomitant]
  11. SINAMET [Concomitant]
  12. FLOMAX [Concomitant]
  13. BABY ASPIRIN [Concomitant]
  14. MULTIVITAMIN [Concomitant]

REACTIONS (1)
  - Circumstance or information capable of leading to medication error [None]
